FAERS Safety Report 5033380-7 (Version None)
Quarter: 2006Q2

REPORT INFORMATION
  Report Type: 
  Country: None (occurrence: None)
  Receive Date: 20060512
  Receipt Date: 20060323
  Transmission Date: 20061013
  Serious: No
  Sender: FDA-Public Use
  Company Number: SUS1-2006-00333

PATIENT
  Age: 44 Year
  Sex: Male
  Weight: 113.4 kg

DRUGS (7)
  1. FOSRENOL [Suspect]
     Indication: HYPERPHOSPHATAEMIA
     Dosage: 1000 MG,3X/DAY:TID
     Dates: start: 20060101
  2. RENAGEL [Concomitant]
  3. AMARYL [Concomitant]
  4. TOPROL-XL [Concomitant]
  5. LIPITOR (ATORAVASTATIN CALCIUM) [Concomitant]
  6. PLAVIX [Concomitant]
  7. ASPIRIN [Concomitant]

REACTIONS (1)
  - BLOOD GLUCOSE INCREASED [None]
